FAERS Safety Report 10349178 (Version 1)
Quarter: 2014Q3

REPORT INFORMATION
  Report Type: Spontaneous
  Country: TR (occurrence: TR)
  Receive Date: 20140730
  Receipt Date: 20140730
  Transmission Date: 20150326
  Serious: Yes (Other)
  Sender: FDA-Public Use
  Company Number: TR-ACCORD-025030

PATIENT
  Age: 65 Year
  Sex: Male

DRUGS (1)
  1. MITOMYCIN. [Suspect]
     Active Substance: MITOMYCIN
     Indication: BLADDER CANCER
     Dosage: INSITILLATION OF 40 MG MMC IN 50 MG DISTILLED WATER FOR 50 MINUTES
     Route: 043

REACTIONS (2)
  - Cystitis [Recovered/Resolved]
  - Ureteric stenosis [Recovered/Resolved]
